FAERS Safety Report 14128340 (Version 1)
Quarter: 2017Q4

REPORT INFORMATION
  Report Type: Spontaneous
  Country: US (occurrence: None)
  Receive Date: 20171026
  Receipt Date: 20171026
  Transmission Date: 20180321
  Serious: Yes (Hospitalization)
  Sender: FDA-Public Use
  Company Number: None

PATIENT
  Age: 72 Year
  Sex: Female
  Weight: 57 kg

DRUGS (1)
  1. NEXAVAR [Suspect]
     Active Substance: SORAFENIB
     Dates: end: 20171017

REACTIONS (6)
  - Cough [None]
  - Decreased appetite [None]
  - Muscular weakness [None]
  - Computerised tomogram thorax abnormal [None]
  - Pneumonia [None]
  - Lung consolidation [None]

NARRATIVE: CASE EVENT DATE: 20171018
